FAERS Safety Report 9384414 (Version 1)
Quarter: 2013Q2

REPORT INFORMATION
  Report Type: Spontaneous
  Country: GB (occurrence: None)
  Receive Date: 20130628
  Receipt Date: 20130628
  Transmission Date: 20140414
  Serious: Yes (Other)
  Sender: FDA-Public Use
  Company Number: 2013060101

PATIENT
  Age: 71 Year
  Sex: Female

DRUGS (6)
  1. DYMISTA [Suspect]
     Indication: SINUS DISORDER
     Dosage: 2 DOSAGE FORMS (2 DOSAGE FORMS, 1 IN 1 D), NASAL
     Dates: start: 20130524, end: 20130529
  2. LEVOTHYROXINE (LEVOTHYROXINE) [Concomitant]
  3. LORATIDINE [Concomitant]
  4. NAPROXEN (NAPROXEN) [Concomitant]
  5. OMEPRAZOLE (OMEPRAZOLE) [Concomitant]
  6. SAFLUTAN (TAFLUPROST) [Concomitant]

REACTIONS (9)
  - Headache [None]
  - Cough [None]
  - Dry throat [None]
  - Thirst [None]
  - Asthenia [None]
  - Chest discomfort [None]
  - Dry mouth [None]
  - Eye pain [None]
  - Fatigue [None]
